FAERS Safety Report 20906471 (Version 5)
Quarter: 2022Q3

REPORT INFORMATION
  Report Type: Spontaneous
  Country: JP (occurrence: JP)
  Receive Date: 20220602
  Receipt Date: 20220701
  Transmission Date: 20221027
  Serious: Yes (Other)
  Sender: FDA-Public Use
  Company Number: JP-PFIZER INC-202200739522

PATIENT
  Age: 1 Year
  Sex: Male
  Weight: 7.8 kg

DRUGS (3)
  1. GENOTROPIN [Suspect]
     Active Substance: SOMATROPIN
     Indication: Prader-Willi syndrome
     Dosage: 0.3 MG, 2X/WEEK
     Route: 058
     Dates: start: 20210914, end: 20211205
  2. GENOTROPIN [Suspect]
     Active Substance: SOMATROPIN
     Indication: Dwarfism
     Dosage: 0.3 MG, 3X/WEEK
     Route: 058
     Dates: start: 20211206, end: 20220317
  3. GENOTROPIN [Suspect]
     Active Substance: SOMATROPIN
     Dosage: 0.3 MG, 6X/WEEK
     Route: 058
     Dates: start: 20220318, end: 20220517

REACTIONS (6)
  - Croup infectious [Unknown]
  - Off label use [Unknown]
  - Injection site erythema [Recovered/Resolved]
  - Respiratory symptom [Unknown]
  - Urticaria [Unknown]
  - Pyrexia [Recovered/Resolved]

NARRATIVE: CASE EVENT DATE: 20210914
